FAERS Safety Report 13937640 (Version 2)
Quarter: 2017Q3

REPORT INFORMATION
  Report Type: Report from Study
  Country: NL (occurrence: NL)
  Receive Date: 20170905
  Receipt Date: 20170915
  Transmission Date: 20171127
  Serious: Yes (Life-Threatening)
  Sender: FDA-Public Use
  Company Number: NL-UCBSA-2017034955

PATIENT
  Age: 32 Year
  Sex: Female

DRUGS (6)
  1. FERROFUMARAT [Concomitant]
     Indication: IRON DEFICIENCY
     Dosage: 200 MG, ONCE DAILY (QD)
     Route: 048
     Dates: start: 20160504
  2. CERTOLIZUMAB PEGOL [Suspect]
     Active Substance: CERTOLIZUMAB PEGOL
     Indication: ANKYLOSING SPONDYLITIS
     Dosage: 200 MG, EV 2 WEEKS(QOW)
     Route: 058
     Dates: start: 20160504, end: 20170823
  3. CELECOXIB. [Concomitant]
     Active Substance: CELECOXIB
     Indication: ANKYLOSING SPONDYLITIS
     Dosage: 100 MG, 2X/DAY (BID)
     Route: 048
     Dates: start: 20170629
  4. COLECALCIFEROL [Concomitant]
     Active Substance: CHOLECALCIFEROL
     Indication: SUPPLEMENTATION THERAPY
     Dosage: 400 IU, UNK
     Route: 048
     Dates: start: 20170517
  5. SULFASALAZINE. [Concomitant]
     Active Substance: SULFASALAZINE
     Indication: ANKYLOSING SPONDYLITIS
     Dosage: 1000 MG, 2X/DAY (BID)
     Route: 048
     Dates: start: 20160504
  6. PERGOVERIS [Concomitant]
     Active Substance: FOLLITROPIN\LUTROPIN ALFA
     Indication: OVULATION INDUCTION
     Dosage: UNK

REACTIONS (2)
  - Breast cancer [Unknown]
  - Pregnancy [Unknown]

NARRATIVE: CASE EVENT DATE: 2016
